FAERS Safety Report 8974964 (Version 4)
Quarter: 2014Q2

REPORT INFORMATION
  Report Type: Spontaneous
  Country: GB (occurrence: GB)
  Receive Date: 20121219
  Receipt Date: 20140605
  Transmission Date: 20141212
  Serious: Yes (Life-Threatening, Hospitalization, Other)
  Sender: FDA-Public Use
  Company Number: PHFR2012GB006170

PATIENT
  Age: 61 Year
  Sex: Female

DRUGS (15)
  1. CLOZARIL [Suspect]
     Indication: SCHIZOPHRENIA
     Dosage: 275 MG
     Route: 048
     Dates: start: 20031030
  2. CLOZARIL [Suspect]
     Dosage: 200 MG
     Route: 048
  3. SERTRALINE [Concomitant]
     Indication: DEPRESSION
     Dosage: 100 MG, UNK
     Route: 048
  4. HYOSCINE [Concomitant]
     Indication: SALIVARY HYPERSECRETION
     Dosage: 0.3 MG, UNK
     Route: 048
  5. INSULIN [Concomitant]
     Indication: DIABETES MELLITUS
     Dosage: 48 UG, UNK
     Route: 058
  6. EZETIMIBE [Concomitant]
     Indication: DIABETES MELLITUS
     Dosage: 10 MG, UNK
     Route: 048
  7. METFORMIN [Concomitant]
     Indication: DIABETES MELLITUS
     Dosage: 2 G, UNK
     Route: 048
  8. ASPIRIN [Concomitant]
     Dosage: UNK
  9. LANSOPRAZOLE [Concomitant]
     Dosage: UNK
  10. RAMIPRIL [Concomitant]
     Indication: BLOOD PRESSURE INCREASED
     Dosage: UNK
  11. SIMVASTATIN [Concomitant]
     Indication: BLOOD CHOLESTEROL INCREASED
     Dosage: UNK
  12. METOPROLOL [Concomitant]
     Dosage: UNK
  13. FORMOTEROL [Concomitant]
     Dosage: UNK
     Route: 055
  14. PYRAZINAMIDE [Concomitant]
     Dosage: UNK
     Route: 055
  15. BUDESONIDE [Concomitant]
     Dosage: UNK
     Route: 055

REACTIONS (8)
  - Asthma [Unknown]
  - Condition aggravated [Unknown]
  - Chronic obstructive pulmonary disease [Unknown]
  - White blood cell count increased [Recovered/Resolved]
  - Neutrophil count increased [Recovered/Resolved]
  - Lower respiratory tract infection [Recovered/Resolved]
  - Glucose tolerance impaired [Unknown]
  - Platelet count increased [Recovered/Resolved]
